FAERS Safety Report 8265422-X (Version None)
Quarter: 2012Q2

REPORT INFORMATION
  Report Type: 
  Country: None (occurrence: None)
  Receive Date: 20120406
  Receipt Date: 20120404
  Transmission Date: 20120825
  Serious: Yes (Hospitalization)
  Sender: FDA-Public Use
  Company Number: SE-PFIZER INC-2012084636

PATIENT
  Age: 48 Year
  Sex: Male

DRUGS (3)
  1. FLUNITRAZEPAM [Suspect]
     Dosage: UNK
     Route: 048
     Dates: start: 20120209
  2. ALPRAZOLAM [Suspect]
     Dosage: UNK
     Route: 048
     Dates: start: 20120209
  3. IMOVANE [Suspect]
     Dosage: UNK
     Route: 048
     Dates: start: 20120209

REACTIONS (1)
  - TOXICITY TO VARIOUS AGENTS [None]
